FAERS Safety Report 12697819 (Version 1)
Quarter: 2016Q3

REPORT INFORMATION
  Report Type: Not Available
  Country: None (occurrence: US)
  Receive Date: 20160830
  Receipt Date: 20160830
  Transmission Date: 20161109
  Serious: No
  Sender: FDA-Public Use
  Company Number: US-AKORN-25610

PATIENT
  Age: 73 Year
  Sex: Female
  Weight: 116 kg

DRUGS (1)
  1. LACTULOSE SOLUTION, USP [Suspect]
     Active Substance: LACTULOSE

REACTIONS (2)
  - Dizziness [Unknown]
  - Reaction to colouring [None]
